FAERS Safety Report 12325697 (Version 1)
Quarter: 2016Q2

REPORT INFORMATION
  Report Type: Spontaneous
  Country: US (occurrence: US)
  Receive Date: 20160503
  Receipt Date: 20160503
  Transmission Date: 20160815
  Serious: Yes (Hospitalization)
  Sender: FDA-Public Use
  Company Number: PHHY2016US057489

PATIENT
  Age: 62 Year
  Sex: Male

DRUGS (6)
  1. PREDNISONE. [Suspect]
     Active Substance: PREDNISONE
     Dosage: 45 MG, QD
     Route: 065
  2. PREDNISONE. [Suspect]
     Active Substance: PREDNISONE
     Indication: ACUTE FEBRILE NEUTROPHILIC DERMATOSIS
     Dosage: 42.5 MG, QD
     Route: 065
  3. ACZ885 [Suspect]
     Active Substance: CANAKINUMAB
     Indication: IMMUNOMODULATORY THERAPY
     Dosage: 180 MG, EVERY 8 WEEKS
     Route: 058
  4. ACZ885 [Suspect]
     Active Substance: CANAKINUMAB
     Dosage: 180 MG, EVERY 8 WEEKS
     Route: 058
  5. PREDNISONE. [Suspect]
     Active Substance: PREDNISONE
     Dosage: 80 MG, QD
     Route: 065
  6. PREDNISONE. [Suspect]
     Active Substance: PREDNISONE
     Dosage: 60 MG, QD
     Route: 065

REACTIONS (5)
  - Oedema peripheral [Recovered/Resolved]
  - Tuberculous tenosynovitis [Recovered/Resolved]
  - Nodule [Recovered/Resolved]
  - Pain in extremity [Recovered/Resolved]
  - Tenderness [Recovered/Resolved]
